FAERS Safety Report 18090452 (Version 1)
Quarter: 2020Q3

REPORT INFORMATION
  Report Type: Spontaneous
  Country: PT (occurrence: PT)
  Receive Date: 20200730
  Receipt Date: 20200730
  Transmission Date: 20201103
  Serious: Yes (Other)
  Sender: FDA-Public Use
  Company Number: PT-TEVA-2020-PT-1806396

PATIENT
  Age: 84 Year
  Sex: Male
  Weight: 75 kg

DRUGS (19)
  1. SERTRALINE [Concomitant]
     Active Substance: SERTRALINE HYDROCHLORIDE
     Dosage: 50 MG
     Route: 048
     Dates: start: 20200416, end: 20200520
  2. OMEPRAZOLE. [Concomitant]
     Active Substance: OMEPRAZOLE
     Dosage: 20 MG
     Route: 048
     Dates: start: 20200403, end: 20200520
  3. PIPERACILLIN AND TAZOBACTAM [Concomitant]
     Active Substance: PIPERACILLIN SODIUM\TAZOBACTAM SODIUM
     Dosage: 9000 MG
     Route: 042
     Dates: start: 20200329, end: 20200407
  4. PARACETAMOL [Concomitant]
     Active Substance: ACETAMINOPHEN
     Dosage: 3000 MG
     Route: 042
     Dates: start: 20200506, end: 20200520
  5. AMIODARONE [Concomitant]
     Active Substance: AMIODARONE
     Dosage: 200 MG
     Route: 048
     Dates: start: 20200423, end: 20200520
  6. AZITHROMYCIN ANHYDROUS. [Suspect]
     Active Substance: AZITHROMYCIN ANHYDROUS
     Indication: COVID-19 PNEUMONIA
     Dosage: 500 MILLIGRAM DAILY;
     Route: 042
     Dates: start: 20200326, end: 20200331
  7. OXAZEPAM. [Concomitant]
     Active Substance: OXAZEPAM
     Dosage: 15 MG
     Route: 048
     Dates: start: 20200416, end: 20200520
  8. NIFEDIPINE. [Concomitant]
     Active Substance: NIFEDIPINE
     Dosage: 60 MG
     Route: 048
     Dates: start: 20200403, end: 20200520
  9. HYDROXYCHLOROQUINE [Suspect]
     Active Substance: HYDROXYCHLOROQUINE
     Indication: COVID-19 PNEUMONIA
     Dosage: 400MG 12 / 12H IN D0 AND THEN 200MG 12 / 12H
     Route: 048
     Dates: start: 20200326, end: 20200406
  10. KETOROLAC [Concomitant]
     Active Substance: KETOROLAC TROMETHAMINE
     Dosage: SOS 2, UNIT DOSE: 30 MG
     Route: 042
     Dates: start: 20200506, end: 20200520
  11. QUETIAPINE. [Concomitant]
     Active Substance: QUETIAPINE
     Dosage: 25 MG
     Route: 048
     Dates: start: 20200415, end: 20200520
  12. CANDESARTAN. [Concomitant]
     Active Substance: CANDESARTAN
     Dosage: 32 MG
     Route: 048
     Dates: start: 20200419, end: 20200520
  13. FUROSEMIDE. [Concomitant]
     Active Substance: FUROSEMIDE
     Dosage: 40 MG
     Route: 042
     Dates: start: 20200505, end: 20200520
  14. ENOXAPARIN SODIUM. [Concomitant]
     Active Substance: ENOXAPARIN SODIUM
     Dosage: 120 MG
     Route: 058
     Dates: start: 20200428, end: 20200520
  15. MORPHINE [Concomitant]
     Active Substance: MORPHINE
     Dosage: SOS 4, 2 MG, PARENTERAL
     Dates: start: 20200506, end: 20200520
  16. CEFAZOLIN [Concomitant]
     Active Substance: CEFAZOLIN
     Dosage: 3000 MG
     Route: 042
     Dates: start: 20200427, end: 20200429
  17. CAPTOPRIL. [Concomitant]
     Active Substance: CAPTOPRIL
     Dosage: SOS 3, 25 MG
     Route: 048
     Dates: start: 20200424, end: 20200520
  18. INDAPAMIDE. [Concomitant]
     Active Substance: INDAPAMIDE
     Dosage: 2.5 MG
     Route: 048
     Dates: start: 20200407, end: 20200520
  19. NOLOTIL [Concomitant]
     Dosage: 4000 MG
     Route: 042
     Dates: start: 20200506, end: 20200520

REACTIONS (4)
  - Cholestasis [Unknown]
  - Acute kidney injury [Recovered/Resolved]
  - Hepatocellular injury [Unknown]
  - COVID-19 treatment [Unknown]

NARRATIVE: CASE EVENT DATE: 20200326
